FAERS Safety Report 8815827 (Version 3)
Quarter: 2012Q4

REPORT INFORMATION
  Report Type: 
  Country: JP (occurrence: JP)
  Receive Date: 20120928
  Receipt Date: 20121107
  Transmission Date: 20130627
  Serious: Yes (Hospitalization, Other)
  Sender: FDA-Public Use
  Company Number: JP-B.I. PHARMACEUTICALS,INC./RIDGEFIELD-2012-EU-04612GD

PATIENT
  Age: 70 Year
  Sex: Male
  Weight: 54.3 kg

DRUGS (5)
  1. DABIGATRAN ETEXILATE [Suspect]
     Indication: ATRIAL FIBRILLATION
     Dosage: 220 mg
     Route: 048
     Dates: start: 20110425, end: 20120112
  2. BAYASPIRIN [Concomitant]
     Dosage: 100 mg
     Route: 048
  3. MUCOSTA [Concomitant]
     Dosage: 200 mg
     Route: 048
  4. PARIET [Concomitant]
     Dosage: 10 mg
     Route: 048
  5. RENIVACE [Concomitant]
     Dosage: 2.5 mg
     Route: 048

REACTIONS (2)
  - Cerebral infarction [Recovered/Resolved with Sequelae]
  - Drug ineffective [Unknown]
